FAERS Safety Report 7945642-1 (Version None)
Quarter: 2011Q4

REPORT INFORMATION
  Report Type: 
  Country: None (occurrence: None)
  Receive Date: 20111129
  Receipt Date: 20111118
  Transmission Date: 20120403
  Serious: Yes (Hospitalization)
  Sender: FDA-Public Use
  Company Number: JP-ROCHE-1007359

PATIENT
  Sex: Female
  Weight: 67 kg

DRUGS (18)
  1. ACTEMRA [Suspect]
     Route: 041
     Dates: start: 20110512, end: 20110512
  2. PREDNISOLONE [Concomitant]
     Route: 048
     Dates: start: 20110204
  3. LOXOPROFEN [Concomitant]
     Route: 048
  4. FOLIC ACID [Concomitant]
     Route: 048
  5. SELBEX [Concomitant]
     Route: 048
  6. ACTEMRA [Suspect]
     Route: 041
     Dates: start: 20110609, end: 20110609
  7. AMLODIPINE [Concomitant]
     Dosage: DRUG REPORTED AS AMLODIN OD
     Route: 048
  8. PREDNISOLONE [Concomitant]
     Indication: RHEUMATOID ARTHRITIS
     Route: 048
     Dates: end: 20110203
  9. METHOTREXATE [Concomitant]
     Route: 048
  10. ACTEMRA [Suspect]
     Route: 041
     Dates: start: 20110317, end: 20110414
  11. ACTEMRA [Suspect]
     Indication: RHEUMATOID ARTHRITIS
     Route: 041
     Dates: start: 20101125, end: 20101224
  12. NIPOLAZIN [Concomitant]
     Route: 048
  13. CINAL [Concomitant]
     Route: 048
  14. KENTON [Concomitant]
     Route: 048
  15. ACTEMRA [Suspect]
     Route: 041
     Dates: start: 20110117, end: 20110117
  16. NEUROVITAN (UKRAINE) [Concomitant]
     Dosage: DOSAGE IS UNCERTAIN.
     Route: 048
  17. AMOBAN [Concomitant]
     Route: 048
  18. FAMOTIDINE [Concomitant]
     Route: 048

REACTIONS (5)
  - HENOCH-SCHONLEIN PURPURA [None]
  - ERYTHEMA NODOSUM [None]
  - DERMATITIS CONTACT [None]
  - PYODERMA GANGRENOSUM [None]
  - THROMBOPHLEBITIS [None]
